FAERS Safety Report 18745416 (Version 2)
Quarter: 2022Q1

REPORT INFORMATION
  Report Type: Report from Study
  Country: US (occurrence: US)
  Receive Date: 20210115
  Receipt Date: 20220210
  Transmission Date: 20220424
  Serious: Yes (Other)
  Sender: FDA-Public Use
  Company Number: US-TAKEDA-US201721401

PATIENT
  Sex: Female

DRUGS (8)
  1. VELAGLUCERASE ALFA [Suspect]
     Active Substance: VELAGLUCERASE ALFA
     Indication: Gaucher^s disease
     Dosage: 6 DOSAGE FORM, 2/MONTH
     Route: 042
     Dates: start: 20130805
  2. VELAGLUCERASE ALFA [Suspect]
     Active Substance: VELAGLUCERASE ALFA
     Dosage: 2000 INTERNATIONAL UNIT, 1/WEEK
     Route: 042
     Dates: start: 20200628
  3. FAMOTIDINE [Concomitant]
     Active Substance: FAMOTIDINE
  4. OMEPRAZOLE [Concomitant]
     Active Substance: OMEPRAZOLE
  5. LAMICTAL [Concomitant]
     Active Substance: LAMOTRIGINE
  6. XYZAL [Concomitant]
     Active Substance: LEVOCETIRIZINE DIHYDROCHLORIDE
  7. FLUOXETINE HYDROCHLORIDE [Concomitant]
     Active Substance: FLUOXETINE HYDROCHLORIDE
  8. GASTROCROM [Concomitant]
     Active Substance: CROMOLYN SODIUM

REACTIONS (4)
  - Splenomegaly [Unknown]
  - Peripheral swelling [Not Recovered/Not Resolved]
  - Epistaxis [Unknown]
  - Dermatitis contact [Unknown]
